FAERS Safety Report 5852936-2 (Version None)
Quarter: 2008Q3

REPORT INFORMATION
  Report Type: 
  Country: None (occurrence: None)
  Receive Date: 20080814
  Receipt Date: 20080625
  Transmission Date: 20090109
  Serious: No
  Sender: FDA-Public Use
  Company Number: WAES 0806USA08609

PATIENT
  Age: 56 Year
  Sex: Male

DRUGS (9)
  1. ISENTRESS [Suspect]
     Indication: HIV INFECTION
     Dosage: 400 MG/BID/PO
     Route: 048
     Dates: start: 20071101
  2. SUSTIVA [Suspect]
     Dosage: PO
     Route: 048
  3. COUMADIN [Concomitant]
  4. INVIRASE [Concomitant]
  5. MAXZIDE [Concomitant]
  6. NORVIR [Concomitant]
  7. TRICOR [Concomitant]
  8. TRUVADA [Concomitant]
  9. ACYCLOVIR [Concomitant]

REACTIONS (2)
  - CONCUSSION [None]
  - FALL [None]
